FAERS Safety Report 14161050 (Version 2)
Quarter: 2018Q1

REPORT INFORMATION
  Report Type: Spontaneous
  Country: US (occurrence: US)
  Receive Date: 20171106
  Receipt Date: 20180103
  Transmission Date: 20180508
  Serious: Yes (Death, Hospitalization)
  Sender: FDA-Public Use
  Company Number: US-LEXICON PHARMACEUTICALS, INC-17-1606-01130

PATIENT
  Age: 47 Year
  Sex: Male

DRUGS (1)
  1. TELOTRISTAT ETHYL [Suspect]
     Active Substance: TELOTRISTAT ETHYL
     Indication: CARCINOID TUMOUR
     Route: 048
     Dates: start: 20171025, end: 20171025

REACTIONS (3)
  - Pneumothorax [Fatal]
  - Multiple organ dysfunction syndrome [Fatal]
  - Hypovolaemia [Fatal]

NARRATIVE: CASE EVENT DATE: 20171025
